FAERS Safety Report 23987299 (Version 3)
Quarter: 2024Q4

REPORT INFORMATION
  Report Type: Spontaneous
  Country: FR (occurrence: FR)
  Receive Date: 20240618
  Receipt Date: 20241219
  Transmission Date: 20250114
  Serious: Yes (Death, Other)
  Sender: APELLIS PHARMACEUTICALS
  Company Number: FR-BIOVITRUM-2024-FR-008233

PATIENT

DRUGS (1)
  1. PEGCETACOPLAN [Suspect]
     Active Substance: PEGCETACOPLAN
     Indication: Paroxysmal nocturnal haemoglobinuria
     Dosage: 3 TIMES PER WEEK
     Route: 058

REACTIONS (4)
  - Cholestasis [Fatal]
  - Hepatic function abnormal [Fatal]
  - Off label use [Unknown]
  - Acute myeloid leukaemia [Fatal]
